FAERS Safety Report 23901326 (Version 1)
Quarter: 2024Q2

REPORT INFORMATION
  Report Type: Spontaneous
  Country: US (occurrence: None)
  Receive Date: 20240526
  Receipt Date: 20240526
  Transmission Date: 20240715
  Serious: No
  Sender: FDA-Public Use
  Company Number: US-ROCHE-3405260

PATIENT
  Age: 50 Year
  Sex: Female

DRUGS (2)
  1. OCREVUS [Suspect]
     Active Substance: OCRELIZUMAB
     Indication: Relapsing-remitting multiple sclerosis
     Route: 042
     Dates: start: 2012, end: 2021
  2. OCREVUS [Suspect]
     Active Substance: OCRELIZUMAB
     Dosage: STATUS: ONGOING
     Route: 042
     Dates: start: 2022

REACTIONS (1)
  - Pain [Unknown]
